FAERS Safety Report 6104934-1 (Version None)
Quarter: 2009Q1

REPORT INFORMATION
  Report Type: 
  Country: None (occurrence: None)
  Receive Date: 20090306
  Receipt Date: 20090303
  Transmission Date: 20090719
  Serious: Yes (Death)
  Sender: FDA-Public Use
  Company Number: US-SANOFI-SYNTHELABO-F03200900009

PATIENT
  Sex: Female
  Weight: 103.9 kg

DRUGS (17)
  1. ZOFRAN [Concomitant]
     Indication: NAUSEA
     Dosage: 8 MG TWICE DAILY FOR 3 DAYS AFTER CHEMO, THEN EVERY 8 HOURS AS NEED FOR NAUSEA
     Route: 048
  2. ALOXI [Concomitant]
     Indication: PREMEDICATION
     Dosage: 0.25 PREMEDICATION FOR EACH CHEMOTHERAPY
     Route: 042
  3. TRAZODONE HCL [Concomitant]
     Indication: INSOMNIA
     Route: 048
  4. TESSALON [Concomitant]
     Indication: COUGH
     Route: 048
  5. OXYCODONE [Concomitant]
     Indication: PAIN
     Dosage: 1-2 EVERY 6 HOURS AS NEEDED
     Route: 048
  6. NEULASTA [Concomitant]
     Indication: DRUG USE FOR UNKNOWN INDICATION
     Dosage: 6 MG EVERY 5 WEEKS
     Route: 058
  7. MOXIFLOXACIN HCL [Concomitant]
     Indication: DRUG USE FOR UNKNOWN INDICATION
     Dosage: 400 MG DAILY FOR 7 DAYS
     Route: 048
     Dates: start: 20090218
  8. LOPERAMIDE HCL [Concomitant]
     Indication: DIARRHOEA
     Route: 048
  9. LEXAPRO [Concomitant]
     Indication: DRUG USE FOR UNKNOWN INDICATION
     Route: 048
  10. ETOPOSIDE [Concomitant]
     Dosage: 100 MG/M2 EVERY 5 WEEKS FOR 3 DAYS
     Route: 042
  11. DURAGESIC-100 [Concomitant]
     Indication: DRUG USE FOR UNKNOWN INDICATION
     Dosage: 100 MCG EVERY 3 DAYS
     Route: 061
  12. DURAGESIC-100 [Concomitant]
     Dosage: 25 MCG EVERY 3 DAYS
     Route: 061
  13. DECADRON [Concomitant]
     Indication: DRUG USE FOR UNKNOWN INDICATION
     Dosage: 4 MG TWICE A DAY THREE DAYS AFTER CHEMOTHERAPY
     Route: 048
  14. CARBOPLATIN [Concomitant]
     Indication: DRUG USE FOR UNKNOWN INDICATION
     Dosage: AUC5 EVERY 5 WEEKS
     Route: 042
  15. ALPRAZOLAM [Concomitant]
     Indication: DRUG USE FOR UNKNOWN INDICATION
     Dosage: 0.5 MG EVERY 8 HOURS AS NEEDED
     Route: 048
  16. IRINOTECAN HCL [Suspect]
     Indication: SMALL CELL LUNG CANCER STAGE UNSPECIFIED
     Dosage: 320 MG EVERY 5 WEEKS
     Route: 042
     Dates: start: 20090225
  17. OXALIPLATIN [Suspect]
     Indication: SMALL CELL LUNG CANCER STAGE UNSPECIFIED
     Dosage: 180 MG EVERY 5 WEEKS
     Route: 042
     Dates: start: 20090225

REACTIONS (1)
  - DEATH [None]
